FAERS Safety Report 9303832 (Version 2)
Quarter: 2013Q2

REPORT INFORMATION
  Report Type: Spontaneous
  Country: DE (occurrence: DE)
  Receive Date: 20130522
  Receipt Date: 20130528
  Transmission Date: 20140414
  Serious: Yes (Hospitalization, Disabling)
  Sender: FDA-Public Use
  Company Number: DE-GLAXOSMITHKLINE-D0079777A

PATIENT
  Age: 54 Year
  Sex: Male
  Weight: 89 kg

DRUGS (4)
  1. REQUIP-MODUTAB [Suspect]
     Indication: PARKINSONISM
     Route: 048
     Dates: start: 20110413
  2. CLARIUM [Concomitant]
     Indication: PARKINSONISM
     Dosage: 100MG PER DAY
     Route: 065
     Dates: end: 201302
  3. AMANTADINE [Concomitant]
     Indication: PARKINSONISM
     Dosage: 200MG PER DAY
     Route: 048
     Dates: start: 2013, end: 201302
  4. METOPROLOL [Concomitant]
     Dosage: 23.75MG PER DAY
     Route: 065
     Dates: start: 20130314, end: 20130322

REACTIONS (5)
  - Cerebral infarction [Recovered/Resolved with Sequelae]
  - Scotoma [Not Recovered/Not Resolved]
  - Headache [Recovered/Resolved]
  - Pain in extremity [Recovered/Resolved]
  - Overdose [Unknown]
